FAERS Safety Report 6435220-8 (Version None)
Quarter: 2009Q4

REPORT INFORMATION
  Report Type: 
  Country: None (occurrence: None)
  Receive Date: 20091110
  Receipt Date: 20091028
  Transmission Date: 20100525
  Serious: Yes (Other)
  Sender: FDA-Public Use
  Company Number: US-ELI_LILLY_AND_COMPANY-US200911000264

PATIENT
  Age: 28 Year
  Sex: Male

DRUGS (2)
  1. ZYPREXA [Suspect]
     Dosage: 15 MG, 2/D
     Dates: start: 20030101
  2. ZYPREXA [Suspect]
     Dosage: 15 MG, 2/D

REACTIONS (3)
  - DECREASED APPETITE [None]
  - OVERDOSE [None]
  - WEIGHT INCREASED [None]
